FAERS Safety Report 21307689 (Version 1)
Quarter: 2022Q3

REPORT INFORMATION
  Report Type: Spontaneous
  Country: AU (occurrence: AU)
  Receive Date: 20220908
  Receipt Date: 20220908
  Transmission Date: 20221027
  Serious: Yes (Hospitalization, Other)
  Sender: FDA-Public Use
  Company Number: AU-OTSUKA-2022_042508

PATIENT
  Age: 47 Year
  Sex: Male

DRUGS (21)
  1. ARIPIPRAZOLE [Suspect]
     Active Substance: ARIPIPRAZOLE
     Indication: Schizophrenia
     Dosage: 30 MG, QD, IN THE EVENING
     Route: 065
  2. ARIPIPRAZOLE [Suspect]
     Active Substance: ARIPIPRAZOLE
     Dosage: 20 MG
     Route: 065
  3. CLOZAPINE [Suspect]
     Active Substance: CLOZAPINE
     Indication: Product used for unknown indication
     Dosage: 12.5 MG
     Route: 065
     Dates: end: 20220224
  4. CLOZAPINE [Suspect]
     Active Substance: CLOZAPINE
     Dosage: 25 MG, QD
     Route: 065
     Dates: end: 20220227
  5. CLOZAPINE [Suspect]
     Active Substance: CLOZAPINE
     Dosage: UNK
     Route: 065
     Dates: end: 20220301
  6. ERYTHROMYCIN [Suspect]
     Active Substance: ERYTHROMYCIN
     Indication: Product used for unknown indication
     Dosage: UNK
     Route: 065
  7. VITAMIN C [Concomitant]
     Active Substance: ASCORBIC ACID
     Indication: Prophylaxis
     Dosage: 500 MG, QD, IN THE EVENING
     Route: 065
  8. ASENAPINE [Concomitant]
     Active Substance: ASENAPINE
     Indication: Schizophrenia
     Dosage: 1 WAFER IN THE MORNING
     Route: 060
  9. ASENAPINE [Concomitant]
     Active Substance: ASENAPINE
     Dosage: 2 WAFERS IN THE EVENING
     Route: 060
  10. ASENAPINE [Concomitant]
     Active Substance: ASENAPINE
     Dosage: 20 MG
     Route: 065
     Dates: start: 2018
  11. ASENAPINE [Concomitant]
     Active Substance: ASENAPINE
     Dosage: 30 MG
     Route: 065
  12. ELEVIT [MINERALS NOS;VITAMINS NOS] [Concomitant]
     Indication: Prophylaxis
     Dosage: 1 TABLET IN THE EVENING
     Route: 065
  13. ATORVASTATIN [Concomitant]
     Active Substance: ATORVASTATIN
     Indication: Prophylaxis
     Dosage: 40 MG, QD, IN THE EVENING
     Route: 065
  14. CLOMIPRAMINE [Concomitant]
     Active Substance: CLOMIPRAMINE
     Indication: Schizophrenia
     Dosage: 5 TABLETS IN THE EVENING
     Route: 065
  15. CLOMIPRAMINE [Concomitant]
     Active Substance: CLOMIPRAMINE
     Dosage: 75 MG
     Route: 065
     Dates: start: 2016
  16. CLOMIPRAMINE [Concomitant]
     Active Substance: CLOMIPRAMINE
     Dosage: 125 MG
     Route: 065
     Dates: start: 201611
  17. CLOMIPRAMINE [Concomitant]
     Active Substance: CLOMIPRAMINE
     Dosage: 150 MG
     Route: 065
     Dates: start: 2018
  18. GEMFIBROZIL [Concomitant]
     Active Substance: GEMFIBROZIL
     Indication: Hypercholesterolaemia
     Dosage: 600 MG, QD
     Route: 065
  19. RISPERIDONE [Concomitant]
     Active Substance: RISPERIDONE
     Indication: Product used for unknown indication
     Dosage: 0.5 MG
     Route: 065
     Dates: start: 202111
  20. RISPERIDONE [Concomitant]
     Active Substance: RISPERIDONE
     Dosage: 1 MG
     Route: 065
  21. RISPERIDONE [Concomitant]
     Active Substance: RISPERIDONE
     Dosage: 4 MG
     Route: 065
     Dates: end: 20220124

REACTIONS (14)
  - Myocarditis [Unknown]
  - Social anxiety disorder [Unknown]
  - Schizophrenia [Unknown]
  - Iron deficiency anaemia [Unknown]
  - Type 2 diabetes mellitus [Unknown]
  - Liver function test abnormal [Unknown]
  - Leukopenia [Unknown]
  - Suicidal ideation [Unknown]
  - COVID-19 [Unknown]
  - Prostatomegaly [Unknown]
  - Cholelithiasis [Unknown]
  - Pancreatic steatosis [Unknown]
  - Malaise [Unknown]
  - Vomiting [Unknown]

NARRATIVE: CASE EVENT DATE: 20211005
